FAERS Safety Report 14291303 (Version 2)
Quarter: 2017Q4

REPORT INFORMATION
  Report Type: Report from Study
  Country: None (occurrence: US)
  Receive Date: 20171215
  Receipt Date: 20171222
  Transmission Date: 20180321
  Serious: Yes (Hospitalization)
  Sender: FDA-Public Use
  Company Number: US-ABBVIE-17K-163-2188497-00

PATIENT
  Age: 44 Year
  Sex: Female
  Weight: 53.12 kg

DRUGS (6)
  1. ROWAS [Concomitant]
     Indication: PRODUCT USED FOR UNKNOWN INDICATION
  2. HUMIRA [Suspect]
     Active Substance: ADALIMUMAB
     Indication: ANKYLOSING SPONDYLITIS
     Route: 058
     Dates: start: 2015, end: 201602
  3. LIALDA [Concomitant]
     Active Substance: MESALAMINE
     Indication: COLITIS ULCERATIVE
  4. HUMIRA [Suspect]
     Active Substance: ADALIMUMAB
     Indication: COLITIS ULCERATIVE
     Route: 058
     Dates: start: 201602, end: 201609
  5. PREDNISONE. [Suspect]
     Active Substance: PREDNISONE
     Indication: PRODUCT USED FOR UNKNOWN INDICATION
     Route: 065
  6. HUMIRA [Suspect]
     Active Substance: ADALIMUMAB
     Route: 058
     Dates: start: 201707

REACTIONS (11)
  - Uterine leiomyoma [Not Recovered/Not Resolved]
  - Clostridium difficile infection [Recovered/Resolved]
  - Uterine enlargement [Recovered/Resolved]
  - Colitis ulcerative [Not Recovered/Not Resolved]
  - Dehydration [Recovered/Resolved]
  - Joint dislocation [Unknown]
  - Colitis ulcerative [Recovered/Resolved]
  - Ankylosing spondylitis [Not Recovered/Not Resolved]
  - Decreased appetite [Not Recovered/Not Resolved]
  - Peptic ulcer [Not Recovered/Not Resolved]
  - Product packaging issue [Unknown]

NARRATIVE: CASE EVENT DATE: 201602
